FAERS Safety Report 8144641-7 (Version None)
Quarter: 2012Q1

REPORT INFORMATION
  Report Type: 
  Country: None (occurrence: None)
  Receive Date: 20120217
  Receipt Date: 20111216
  Transmission Date: 20120608
  Serious: Yes (Hospitalization)
  Sender: FDA-Public Use
  Company Number: AR-ROCHE-1040906

PATIENT
  Sex: Female

DRUGS (1)
  1. LUCENTIS [Suspect]
     Indication: CHORIORETINOPATHY
     Route: 050
     Dates: start: 20111001

REACTIONS (2)
  - ATRIAL SEPTAL DEFECT [None]
  - VERTIGO [None]
